FAERS Safety Report 8063767-X (Version None)
Quarter: 2012Q1

REPORT INFORMATION
  Report Type: 
  Country: None (occurrence: None)
  Receive Date: 20120123
  Receipt Date: 20120109
  Transmission Date: 20120608
  Serious: Yes (Death)
  Sender: FDA-Public Use
  Company Number: US-MERCK-1201USA02191

PATIENT
  Age: 67 Year
  Sex: Female

DRUGS (7)
  1. METOPROLOL [Suspect]
     Route: 048
  2. SOLIFENACIN SUCCINATE [Suspect]
     Route: 048
  3. MEMANTINE [Suspect]
     Route: 048
  4. CLOZAPINE [Suspect]
     Route: 048
  5. ESCITALOPRAM [Suspect]
     Route: 048
  6. ZOCOR [Suspect]
     Route: 048
  7. AMPHETAMINE AND DEXTROAMPHETAMINE [Suspect]
     Route: 048

REACTIONS (3)
  - ADVERSE EVENT [None]
  - RESPIRATORY ARREST [None]
  - CARDIAC ARREST [None]
